FAERS Safety Report 24979046 (Version 1)
Quarter: 2025Q1

REPORT INFORMATION
  Report Type: Spontaneous
  Country: US (occurrence: US)
  Receive Date: 20250218
  Receipt Date: 20250218
  Transmission Date: 20250409
  Serious: Yes (Other)
  Sender: JOHNSON AND JOHNSON
  Company Number: US-JNJFOC-20250198523

PATIENT
  Age: 76 Year
  Sex: Male

DRUGS (1)
  1. CARVYKTI [Suspect]
     Active Substance: CILTACABTAGENE AUTOLEUCEL
     Indication: Plasma cell myeloma
     Route: 065
     Dates: start: 2024

REACTIONS (5)
  - Cytokine release syndrome [Recovered/Resolved]
  - Dysphonia [Unknown]
  - Apathy [Unknown]
  - Slow response to stimuli [Unknown]
  - Personality change [Unknown]
